FAERS Safety Report 23996520 (Version 2)
Quarter: 2024Q3

REPORT INFORMATION
  Report Type: Spontaneous
  Country: IT (occurrence: IT)
  Receive Date: 20240620
  Receipt Date: 20240703
  Transmission Date: 20241016
  Serious: Yes (Hospitalization)
  Sender: AMERICAN REGENT
  Company Number: IT-AMERICAN REGENT INC-2024002365

PATIENT
  Age: 23 Year
  Sex: Female

DRUGS (1)
  1. FERINJECT [Suspect]
     Active Substance: FERRIC CARBOXYMALTOSE
     Indication: Iron deficiency anaemia
     Dosage: DILUTED IN 250 ML SALINE SOLUTION (900 MG)
     Dates: start: 20240519, end: 20240519

REACTIONS (1)
  - Urticaria vesiculosa [Recovered/Resolved]

NARRATIVE: CASE EVENT DATE: 20240519
